FAERS Safety Report 7866853-X (Version None)
Quarter: 2011Q4

REPORT INFORMATION
  Report Type: 
  Country: None (occurrence: None)
  Receive Date: 20111028
  Receipt Date: 20111018
  Transmission Date: 20120403
  Serious: Yes (Other)
  Sender: FDA-Public Use
  Company Number: ES-JNJFOC-20111011823

PATIENT
  Age: 70 Year
  Sex: Male

DRUGS (5)
  1. DULOXETIME HYDROCHLORIDE [Concomitant]
     Route: 065
  2. ETORICOXIB [Concomitant]
     Route: 065
  3. PALEXIA RETARD [Suspect]
     Indication: PAIN
     Route: 048
     Dates: start: 20110929, end: 20111013
  4. BACLOFEN [Concomitant]
     Route: 065
  5. GABAPENTIN [Concomitant]
     Route: 065

REACTIONS (3)
  - NERVOUSNESS [None]
  - INSOMNIA [None]
  - AGITATION [None]
